FAERS Safety Report 21279209 (Version 1)
Quarter: 2022Q3

REPORT INFORMATION
  Report Type: Other
  Country: US (occurrence: None)
  Receive Date: 20220901
  Receipt Date: 20220901
  Transmission Date: 20221027
  Serious: No
  Sender: FDA-Public Use
  Company Number: US-ROCHE-3165929

PATIENT
  Age: 43 Year
  Sex: Female
  Weight: 78.996 kg

DRUGS (1)
  1. OCREVUS [Suspect]
     Active Substance: OCRELIZUMAB
     Indication: Multiple sclerosis
     Dosage: YES; DOT: 27/JUL/2022, 10/JAN/2022, 08/JUL/2021, 21/DEC/2020, 04/JAN/2021
     Route: 042
     Dates: start: 202101

REACTIONS (1)
  - COVID-19 [Recovered/Resolved]

NARRATIVE: CASE EVENT DATE: 20220703
